FAERS Safety Report 6671442-9 (Version None)
Quarter: 2010Q2

REPORT INFORMATION
  Report Type: 
  Country: None (occurrence: None)
  Receive Date: 20100406
  Receipt Date: 20100406
  Transmission Date: 20101027
  Serious: Yes (Hospitalization)
  Sender: FDA-Public Use
  Company Number: None

PATIENT
  Age: 90 Year
  Sex: Female
  Weight: 54.8852 kg

DRUGS (2)
  1. AMBIEN [Suspect]
     Indication: INSOMNIA
     Dosage: 5 MG AT BEDTIME MOUTH
     Route: 048
     Dates: start: 20100213
  2. ZOLPIDEM [Suspect]
     Indication: INSOMNIA
     Dosage: 5 MG AT BEDTIME MOUTH
     Route: 048
     Dates: start: 20100313

REACTIONS (6)
  - CONFUSIONAL STATE [None]
  - FALL [None]
  - HALLUCINATION [None]
  - LETHARGY [None]
  - MUSCLE STRAIN [None]
  - UNRESPONSIVE TO STIMULI [None]
